FAERS Safety Report 12856220 (Version 2)
Quarter: 2016Q4

REPORT INFORMATION
  Report Type: Spontaneous
  Country: US (occurrence: US)
  Receive Date: 20161018
  Receipt Date: 20161021
  Transmission Date: 20170207
  Serious: No
  Sender: FDA-Public Use
  Company Number: US-HORIZON-RAV-0204-2016

PATIENT
  Age: 23 Year
  Sex: Male

DRUGS (3)
  1. RAVICTI [Suspect]
     Active Substance: GLYCEROL PHENYLBUTYRATE
     Indication: ORNITHINE TRANSCARBAMOYLASE DEFICIENCY
  2. SODIUM PHENYLBUTYRATE (GENERIC) [Concomitant]
  3. CITRULLINE [Concomitant]
     Active Substance: CITRULLINE

REACTIONS (3)
  - Retching [Unknown]
  - Dysgeusia [Unknown]
  - Treatment noncompliance [Unknown]
